FAERS Safety Report 11722577 (Version 1)
Quarter: 2015Q4

REPORT INFORMATION
  Report Type: Spontaneous
  Country: US (occurrence: US)
  Receive Date: 20151111
  Receipt Date: 20151111
  Transmission Date: 20160304
  Serious: Yes (Congenital Anomaly, Other)
  Sender: FDA-Public Use
  Company Number: US-GLAXOSMITHKLINE-US2015153816

PATIENT
  Age: 0 Day
  Sex: Male

DRUGS (1)
  1. LAMICTAL XR [Suspect]
     Active Substance: LAMOTRIGINE
     Indication: PRODUCT USED FOR UNKNOWN INDICATION
     Dosage: 200 MG, 1D
     Route: 064
     Dates: start: 20100101

REACTIONS (3)
  - Foetal exposure during pregnancy [Unknown]
  - Congenital multiplex arthrogryposis [Unknown]
  - Congenital skin dimples [Unknown]

NARRATIVE: CASE EVENT DATE: 20151019
